FAERS Safety Report 15422505 (Version 1)
Quarter: 2018Q3

REPORT INFORMATION
  Report Type: Report from Study
  Country: None (occurrence: CA)
  Receive Date: 20180925
  Receipt Date: 20180925
  Transmission Date: 20181010
  Serious: Yes (Hospitalization, Other)
  Sender: FDA-Public Use
  Company Number: CA-ABBVIE-18K-028-2449700-00

PATIENT
  Sex: Female

DRUGS (1)
  1. HUMIRA [Suspect]
     Active Substance: ADALIMUMAB
     Indication: PSORIATIC ARTHROPATHY
     Route: 058
     Dates: start: 20111102, end: 201807

REACTIONS (9)
  - External ear cellulitis [Unknown]
  - Skin bacterial infection [Recovering/Resolving]
  - Staphylococcal skin infection [Unknown]
  - Oral bacterial infection [Not Recovered/Not Resolved]
  - Cellulitis [Unknown]
  - Osteomyelitis [Not Recovered/Not Resolved]
  - Dermatitis psoriasiform [Unknown]
  - Ear infection [Not Recovered/Not Resolved]
  - Psoriasis [Not Recovered/Not Resolved]

NARRATIVE: CASE EVENT DATE: 2018
